FAERS Safety Report 6700835-6 (Version None)
Quarter: 2010Q2

REPORT INFORMATION
  Report Type: 
  Country: None (occurrence: None)
  Receive Date: 20100426
  Receipt Date: 20100414
  Transmission Date: 20101027
  Serious: Yes (Life-Threatening)
  Sender: FDA-Public Use
  Company Number: CV20100191

PATIENT
  Age: 7 Year
  Sex: Male

DRUGS (11)
  1. PROPOFOL [Suspect]
     Indication: INDUCTION OF ANAESTHESIA
     Dosage: 100 MG INTRAVENOUS (NOT OTHERWISE SPECIFIED)
     Route: 042
  2. ONDANSETRON       (MANUFACTURER UNKNOWN) [Suspect]
     Indication: DRUG USE FOR UNKNOWN INDICATION
     Dosage: 3 MG INTRAVENOUS (NOT OTHERWISE SPECIFIED)
     Route: 042
  3. ADRENALINE   (EPINEPHRINE)         (EPINEPHRINE) [Concomitant]
  4. ATRACURIUM BESYLATE [Concomitant]
  5. BUPIVACAIN    (BUPIVACAINE HYDROCHLORIDE) [Concomitant]
  6. DESFLURANE [Concomitant]
  7. DEXAMETHASONE [Concomitant]
  8. FENTANYL-100 [Concomitant]
  9. MORPHINE [Concomitant]
  10. NITROUS OXIDE W/ OXYGEN [Concomitant]
  11. ACETAMINOPHEN [Concomitant]

REACTIONS (9)
  - ANAESTHETIC COMPLICATION [None]
  - ASTHENIA [None]
  - BLOOD PRESSURE SYSTOLIC INCREASED [None]
  - CENTRAL NERVOUS SYSTEM LESION [None]
  - CEREBRAL HAEMORRHAGE [None]
  - HYPOXIA [None]
  - RESPIRATION ABNORMAL [None]
  - RESPIRATORY ACIDOSIS [None]
  - RESPIRATORY DISTRESS [None]
